FAERS Safety Report 9238135 (Version 1)
Quarter: 2013Q2

REPORT INFORMATION
  Report Type: Spontaneous
  Country: PL (occurrence: PL)
  Receive Date: 20130418
  Receipt Date: 20130418
  Transmission Date: 20140414
  Serious: Yes (Other)
  Sender: FDA-Public Use
  Company Number: PHHY2013PL036449

PATIENT
  Sex: Male
  Weight: 86 kg

DRUGS (1)
  1. GLIVEC [Suspect]
     Indication: GASTROINTESTINAL STROMAL TUMOUR
     Dosage: 400 MG
     Route: 048
     Dates: start: 20080828, end: 20130220

REACTIONS (2)
  - Lung neoplasm malignant [Unknown]
  - Second primary malignancy [Unknown]
